FAERS Safety Report 16550616 (Version 1)
Quarter: 2019Q3

REPORT INFORMATION
  Report Type: Spontaneous
  Country: US (occurrence: US)
  Receive Date: 20190710
  Receipt Date: 20190710
  Transmission Date: 20191004
  Serious: Yes (Other)
  Sender: FDA-Public Use
  Company Number: US-BTG-201900124

PATIENT
  Age: 54 Year
  Sex: Female
  Weight: 180 kg

DRUGS (1)
  1. VORAXAZE [Suspect]
     Active Substance: GLUCARPIDASE
     Indication: TOXICITY TO VARIOUS AGENTS
     Dosage: 9 VIALS
     Route: 065
     Dates: start: 20190629

REACTIONS (3)
  - Laboratory test interference [Unknown]
  - Cardiorenal syndrome [Unknown]
  - Renal failure [Unknown]

NARRATIVE: CASE EVENT DATE: 20190630
